FAERS Safety Report 9924118 (Version 1)
Quarter: 2014Q1

REPORT INFORMATION
  Report Type: Spontaneous
  Country: US (occurrence: US)
  Receive Date: 20140226
  Receipt Date: 20140226
  Transmission Date: 20141002
  Serious: No
  Sender: FDA-Public Use
  Company Number: US-009507513-1402USA008349

PATIENT
  Age: 28 Year
  Sex: Female

DRUGS (1)
  1. IMPLANON [Suspect]
     Indication: CONTRACEPTION
     Dosage: 1 STANDARD 3 YEAR IMPLANT
     Route: 059
     Dates: start: 20110118

REACTIONS (4)
  - Mood altered [Recovering/Resolving]
  - Menstruation irregular [Recovering/Resolving]
  - Affect lability [Recovering/Resolving]
  - Incorrect drug administration duration [Unknown]
